FAERS Safety Report 11242781 (Version 2)
Quarter: 2015Q3

REPORT INFORMATION
  Report Type: Report from Study
  Country: PR (occurrence: PR)
  Receive Date: 20150707
  Receipt Date: 20150814
  Transmission Date: 20151125
  Serious: Yes (Hospitalization)
  Sender: FDA-Public Use
  Company Number: PR-ABBVIE-15K-131-1400712-00

PATIENT
  Age: 23 Year
  Sex: Female
  Weight: 55.84 kg

DRUGS (2)
  1. HUMIRA [Suspect]
     Active Substance: ADALIMUMAB
     Indication: CROHN^S DISEASE
     Route: 058
     Dates: start: 20140904, end: 201505
  2. IMURAN [Concomitant]
     Active Substance: AZATHIOPRINE
     Indication: PRODUCT USED FOR UNKNOWN INDICATION

REACTIONS (9)
  - Crohn^s disease [Not Recovered/Not Resolved]
  - Gastrointestinal bacterial infection [Recovered/Resolved]
  - Drug ineffective [Recovering/Resolving]
  - Inflammatory marker increased [Recovering/Resolving]
  - Pain [Recovering/Resolving]
  - Asthenia [Recovered/Resolved]
  - Hyperhidrosis [Recovered/Resolved]
  - Rectal haemorrhage [Recovered/Resolved]
  - Inflammatory marker increased [Recovered/Resolved]

NARRATIVE: CASE EVENT DATE: 201409
